FAERS Safety Report 5217875-9 (Version None)
Quarter: 2007Q1

REPORT INFORMATION
  Report Type: 
  Country: None (occurrence: None)
  Receive Date: 20061130
  Receipt Date: 20060731
  Transmission Date: 20070707
  Serious: Yes (Hospitalization)
  Sender: FDA-Public Use
  Company Number: US200608000498

PATIENT
  Age: 42 Year
  Sex: Male
  Weight: 119.7 kg

DRUGS (4)
  1. ZYPREXA [Suspect]
     Dates: start: 20030101, end: 20041201
  2. RISPERIDONE [Concomitant]
  3. WELLBUTRIN [Concomitant]
  4. CELEXA [Concomitant]

REACTIONS (3)
  - BLOOD CHOLESTEROL INCREASED [None]
  - DIABETES MELLITUS [None]
  - HYPERTENSION [None]
